FAERS Safety Report 4749457-7 (Version None)
Quarter: 2005Q3

REPORT INFORMATION
  Report Type: 
  Country: None (occurrence: None)
  Receive Date: 20050822
  Receipt Date: 20050810
  Transmission Date: 20060218
  Serious: Yes (Other)
  Sender: FDA-Public Use
  Company Number: US-JNJFOC-20050604128

PATIENT
  Sex: Female
  Weight: 50.92 kg

DRUGS (13)
  1. REMICADE [Suspect]
     Route: 042
  2. REMICADE [Suspect]
     Indication: RHEUMATOID ARTHRITIS
     Route: 042
  3. ARAVA [Suspect]
     Indication: RHEUMATOID ARTHRITIS
  4. SYNTHROID [Concomitant]
  5. PREDNISONE [Concomitant]
  6. PREMARIN [Concomitant]
  7. HYDROCODINE [Concomitant]
  8. ASPIRIN [Concomitant]
  9. ALEVE [Concomitant]
  10. LORAZEPAM [Concomitant]
  11. INHALER [Concomitant]
  12. EFFEXOR [Concomitant]
  13. TRILEPTAL [Concomitant]

REACTIONS (8)
  - ASTHMA [None]
  - CHEST WALL PAIN [None]
  - COUGH [None]
  - FALL [None]
  - HIP SURGERY [None]
  - PHOTOSENSITIVITY REACTION [None]
  - PSORIASIS [None]
  - RHEUMATOID ARTHRITIS [None]
